FAERS Safety Report 6400155-3 (Version None)
Quarter: 2009Q4

REPORT INFORMATION
  Report Type: 
  Country: None (occurrence: None)
  Receive Date: 20091014
  Receipt Date: 20091013
  Transmission Date: 20100525
  Serious: Yes (Hospitalization)
  Sender: FDA-Public Use
  Company Number: HR-ROCHE-659637

PATIENT
  Sex: Female
  Weight: 91.9 kg

DRUGS (7)
  1. EPOETIN BETA [Suspect]
     Route: 042
  2. SEVELAMER HYDROCHLORIDE [Concomitant]
     Dosage: TDD:3X2 800 MG
  3. CALCIUM CARBONATE [Concomitant]
  4. FUROSEMIDE [Concomitant]
     Dosage: TDD:1/2 A 500 MG. DRUG REPORTED AS FUROSEMID FORTE.
  5. ALLOPURINOL [Concomitant]
  6. BISOPROLOL [Concomitant]
     Dosage: TDD:2,5 MG
  7. OMEGA 3 PLUS [Concomitant]
     Dosage: TDD:2X1 DRUG REPORTED AS 2X1

REACTIONS (1)
  - VASCULAR GRAFT COMPLICATION [None]
